FAERS Safety Report 10047913 (Version 4)
Quarter: 2014Q2

REPORT INFORMATION
  Report Type: Spontaneous
  Country: US (occurrence: US)
  Receive Date: 20140331
  Receipt Date: 20140428
  Transmission Date: 20141212
  Serious: Yes (Hospitalization)
  Sender: FDA-Public Use
  Company Number: US-BAXTER-2014BAX015819

PATIENT
  Age: 66 Year
  Sex: Male

DRUGS (1)
  1. DIANEAL LOW CALCIUM [Suspect]
     Indication: PERITONEAL DIALYSIS
     Route: 033

REACTIONS (6)
  - Cardiac failure congestive [Recovering/Resolving]
  - Pulmonary oedema [Unknown]
  - Fluid overload [Recovering/Resolving]
  - Abdominal distension [Unknown]
  - Dehydration [Unknown]
  - Fluid retention [Recovered/Resolved]
